FAERS Safety Report 15566446 (Version 1)
Quarter: 2018Q4

REPORT INFORMATION
  Report Type: Spontaneous
  Country: US (occurrence: US)
  Receive Date: 20181030
  Receipt Date: 20181030
  Transmission Date: 20190205
  Serious: No
  Sender: FDA-Public Use
  Company Number: US-FRESENIUS KABI-FK201811101

PATIENT

DRUGS (1)
  1. DIPRIVAN [Suspect]
     Active Substance: PROPOFOL
     Indication: PRODUCT USED FOR UNKNOWN INDICATION
     Dosage: UNKNOWN
     Route: 065

REACTIONS (2)
  - Hallucination [Unknown]
  - Somnolence [Unknown]

NARRATIVE: CASE EVENT DATE: 2018
